FAERS Safety Report 6188230-2 (Version None)
Quarter: 2009Q2

REPORT INFORMATION
  Report Type: 
  Country: None (occurrence: None)
  Receive Date: 20090513
  Receipt Date: 20090504
  Transmission Date: 20091009
  Serious: Yes (Hospitalization)
  Sender: FDA-Public Use
  Company Number: US-BIOGENIDEC-2009BI010623

PATIENT
  Age: 31 Year
  Sex: Female

DRUGS (4)
  1. TYSABRI [Suspect]
     Indication: MULTIPLE SCLEROSIS
     Route: 042
     Dates: start: 20081117
  2. TYSABRI [Suspect]
     Route: 042
     Dates: start: 20081117
  3. TYSABRI [Suspect]
     Route: 042
     Dates: start: 20070215, end: 20070531
  4. TYSABRI [Suspect]
     Route: 042
     Dates: start: 20080213, end: 20080522

REACTIONS (5)
  - ADRENAL DISORDER [None]
  - CHILLS [None]
  - LOSS OF CONSCIOUSNESS [None]
  - PAIN [None]
  - SEPSIS [None]
